FAERS Safety Report 4407355-2 (Version None)
Quarter: 2004Q3

REPORT INFORMATION
  Report Type: 
  Country: None (occurrence: None)
  Receive Date: 20040723
  Receipt Date: 20040723
  Transmission Date: 20050211
  Serious: Yes (Hospitalization)
  Sender: FDA-Public Use
  Company Number: None

PATIENT
  Age: 52 Year
  Sex: Female
  Weight: 86.1834 kg

DRUGS (2)
  1. ADRIAMYCIN PFS [Suspect]
     Indication: BREAST CANCER
     Dosage: QOT 1ST -4X
     Dates: start: 20040625
  2. CYTOXAN [Suspect]
     Indication: BREAST CANCER

REACTIONS (2)
  - NEUTROPHIL COUNT DECREASED [None]
  - PYREXIA [None]
